FAERS Safety Report 6393409-0 (Version None)
Quarter: 2009Q4

REPORT INFORMATION
  Report Type: 
  Country: None (occurrence: None)
  Receive Date: 20091008
  Receipt Date: 20091002
  Transmission Date: 20100525
  Serious: Yes (Other)
  Sender: FDA-Public Use
  Company Number: JP-B.I. PHARMACEUTICALS,INC./RIDGEFIELD-2009-DE-06335GD

PATIENT
  Sex: Female

DRUGS (3)
  1. DIPYRIDAMOLE [Suspect]
     Indication: CARDIOVASCULAR EVENT PROPHYLAXIS
  2. WARFARIN SODIUM [Suspect]
     Indication: CARDIOVASCULAR EVENT PROPHYLAXIS
     Dosage: DOSE ADJUSTMENT REGARDING TARGET PT-INR OF 1.5-2.0
     Route: 048
  3. ASPIRIN [Suspect]
     Indication: CARDIOVASCULAR EVENT PROPHYLAXIS
     Dosage: 3-5 MG/KG (MAXIMUM 100 MG)
     Route: 048

REACTIONS (1)
  - OVARIAN HAEMORRHAGE [None]
